FAERS Safety Report 8704844 (Version 4)
Quarter: 2013Q1

REPORT INFORMATION
  Report Type: Report from Study
  Country: JP (occurrence: JP)
  Receive Date: 20120803
  Receipt Date: 20130314
  Transmission Date: 20140127
  Serious: Yes (Hospitalization)
  Sender: FDA-Public Use
  Company Number: JP-009507513-1207JPN012651

PATIENT
  Age: 70 Year
  Sex: Female
  Weight: 62 kg

DRUGS (23)
  1. PEGINTRON [Suspect]
     Indication: CHRONIC HEPATITIS C
     Dosage: UNK UNK, QW
     Route: 058
     Dates: start: 20120516, end: 20120530
  2. PEGINTRON [Suspect]
     Dosage: UNK UNK, QW
     Route: 058
     Dates: start: 20120607, end: 20120607
  3. PEGINTRON [Suspect]
     Dosage: 1.0 UNK, UNK
     Route: 058
     Dates: start: 20120614
  4. PEGINTRON [Suspect]
     Dosage: 80 MICROGRAM PER KILOGRAM, QW
     Route: 058
     Dates: end: 20121025
  5. REBETOL [Suspect]
     Indication: CHRONIC HEPATITIS C
     Dosage: 800 MG, QD
     Route: 048
     Dates: start: 20110516, end: 20110711
  6. REBETOL [Suspect]
     Dosage: 600 MG, QD
     Route: 048
     Dates: start: 20120712, end: 20120718
  7. REBETOL [Suspect]
     Dosage: 200 MG, QD
     Route: 048
     Dates: start: 20120719, end: 20120919
  8. REBETOL [Suspect]
     Dosage: 400 MG, QD
     Route: 048
     Dates: start: 20120920, end: 20121031
  9. TELAVIC [Suspect]
     Indication: CHRONIC HEPATITIS C
     Dosage: 1500 MG, QD
     Route: 048
     Dates: start: 20120516
  10. MERISLON [Concomitant]
     Indication: DIZZINESS
     Dosage: 24 MG, QD
     Route: 048
  11. MERISLON [Concomitant]
     Route: 048
  12. GLUFAST [Concomitant]
     Indication: DIABETES MELLITUS
     Dosage: 30 MG, QD
     Route: 048
     Dates: end: 20120517
  13. GLUFAST [Concomitant]
     Dosage: 15 MG, QD
     Route: 048
     Dates: start: 20120517
  14. CALBLOCK [Concomitant]
     Indication: OSTEOPOROSIS
     Dosage: 8 MG, QD
     Route: 048
  15. CALBLOCK [Concomitant]
     Dosage: 8 MG, QD
     Route: 048
  16. LOXONIN [Concomitant]
     Dosage: 15 MG, QD
     Route: 048
     Dates: start: 20120516
  17. TAKEPRON [Concomitant]
     Indication: PROPHYLAXIS AGAINST GASTROINTESTINAL ULCER
     Dosage: 15 MG, QD
     Route: 048
     Dates: start: 20120516
  18. METHADERM [Concomitant]
     Indication: PRURITUS
     Dosage: DAILY DOSE UNKNOWN
     Route: 062
     Dates: start: 20120518, end: 20121119
  19. SOLACET F [Concomitant]
     Indication: PROPHYLAXIS
     Dosage: 500 ML, QD
     Route: 042
     Dates: start: 20120712, end: 20120716
  20. TALION (BEPOTASTINE BESYLATE) [Concomitant]
     Dosage: 20 MG, QD
     Route: 048
     Dates: start: 20120518
  21. [THERAPY UNSPECIFIED] [Concomitant]
     Dosage: DAILY DOSE UNKNOWN
     Route: 062
     Dates: start: 20120518, end: 20121129
  22. VITAMEDIN [Concomitant]
     Indication: PROPHYLAXIS
     Dosage: 1 DF, QD
     Route: 042
     Dates: start: 20120712, end: 20120716
  23. LOCOID [Concomitant]
     Indication: PROPHYLAXIS
     Dosage: UNK, PRN
     Route: 061
     Dates: start: 20120607, end: 20120621

REACTIONS (4)
  - Decreased appetite [Recovered/Resolved]
  - Malaise [Recovering/Resolving]
  - Malaise [Recovered/Resolved]
  - Malaise [Recovered/Resolved]
